FAERS Safety Report 18570271 (Version 1)
Quarter: 2020Q4

REPORT INFORMATION
  Report Type: Spontaneous
  Country: US (occurrence: US)
  Receive Date: 20201202
  Receipt Date: 20201202
  Transmission Date: 20210114
  Serious: No
  Sender: FDA-Public Use
  Company Number: None

PATIENT
  Sex: Male
  Weight: 72 kg

DRUGS (2)
  1. DABIGATRAN (DABIGARAN ETEXILATE 150MG CAP, ORAL) [Suspect]
     Active Substance: DABIGATRAN ETEXILATE MESYLATE
     Indication: CARDIAC FAILURE CONGESTIVE
     Route: 048
     Dates: start: 20201002, end: 20201027
  2. DABIGATRAN (DABIGARAN ETEXILATE 150MG CAP, ORAL) [Suspect]
     Active Substance: DABIGATRAN ETEXILATE MESYLATE
     Indication: PULMONARY EMBOLISM
     Route: 048
     Dates: start: 20201002, end: 20201027

REACTIONS (1)
  - Rash [None]

NARRATIVE: CASE EVENT DATE: 20201020
